FAERS Safety Report 23011893 (Version 2)
Quarter: 2023Q4

REPORT INFORMATION
  Report Type: Spontaneous
  Country: US (occurrence: US)
  Receive Date: 20230929
  Receipt Date: 20231229
  Transmission Date: 20240110
  Serious: Yes (Death, Other)
  Sender: FDA-Public Use
  Company Number: US-BRISTOL-MYERS SQUIBB COMPANY-2023-138348

PATIENT
  Age: 58 Year
  Sex: Male

DRUGS (2)
  1. OPDIVO [Suspect]
     Active Substance: NIVOLUMAB
     Indication: Lung neoplasm malignant
     Dosage: STRENGTH AND PRESENTATION OF THE AE : OPDIVO 2X100MG VIALS, IV SOLUTION FOR INFUSION
     Route: 042
     Dates: end: 20230803
  2. YERVOY [Suspect]
     Active Substance: IPILIMUMAB
     Indication: Lung neoplasm malignant
     Dosage: STRENGTH AND PRESENTATION OF THE AE-YERVOY 150MG VIALS, IV SOLUTION FOR INFUSION
     Route: 042
     Dates: end: 20230803

REACTIONS (2)
  - Death [Fatal]
  - Intentional product use issue [Unknown]
